FAERS Safety Report 24357135 (Version 1)
Quarter: 2024Q3

REPORT INFORMATION
  Report Type: Spontaneous
  Country: US (occurrence: None)
  Receive Date: 20240923
  Receipt Date: 20240923
  Transmission Date: 20241017
  Serious: Yes (Hospitalization)
  Sender: Public
  Company Number: None

PATIENT
  Age: 62 Year
  Sex: Male
  Weight: 78 kg

DRUGS (1)
  1. CARVYKTI [Suspect]
     Active Substance: CILTACABTAGENE AUTOLEUCEL
     Indication: Plasma cell myeloma
     Dosage: 1 DF DOSAGE FORM ONCE INTRAVENOUS
     Route: 042
     Dates: start: 20240730, end: 20240730

REACTIONS (5)
  - Atrial fibrillation [None]
  - Hyperbilirubinaemia [None]
  - Cervical dysplasia [None]
  - Cytokine release syndrome [None]
  - Nausea [None]

NARRATIVE: CASE EVENT DATE: 20240806
